FAERS Safety Report 8463374-0 (Version None)
Quarter: 2012Q2

REPORT INFORMATION
  Report Type: 
  Country: None (occurrence: None)
  Receive Date: 20120625
  Receipt Date: 20120618
  Transmission Date: 20120825
  Serious: Yes (Hospitalization)
  Sender: FDA-Public Use
  Company Number: FR-MERCK-1206USA03477

PATIENT
  Age: 72 Year
  Sex: Female
  Weight: 61 kg

DRUGS (21)
  1. LEVOTHYROXINE SODIUM [Concomitant]
     Route: 065
  2. ZOFRAN [Suspect]
     Indication: PROPHYLAXIS OF NAUSEA AND VOMITING
     Route: 048
     Dates: start: 20120521, end: 20120523
  3. FOLIC ACID [Concomitant]
     Route: 065
  4. TRANSIPEG [Concomitant]
     Route: 065
  5. NOVOLOG [Concomitant]
     Route: 065
  6. EMEND [Suspect]
     Indication: PROPHYLAXIS OF NAUSEA AND VOMITING
     Route: 048
     Dates: start: 20120521, end: 20120521
  7. ACETAMINOPHEN [Concomitant]
     Indication: PAIN
     Route: 065
  8. CISPLATIN [Suspect]
     Indication: LUNG ADENOCARCINOMA
     Route: 042
     Dates: start: 20120521, end: 20120523
  9. LYRICA [Concomitant]
     Route: 065
  10. NOVOLOG [Concomitant]
     Route: 065
  11. FLUTICASONE PROPIONATE/SALMETEROL [Concomitant]
     Route: 065
  12. EMEND [Suspect]
     Route: 048
     Dates: start: 20120522, end: 20120523
  13. ALIMTA [Suspect]
     Indication: LUNG ADENOCARCINOMA
     Route: 042
     Dates: start: 20120521, end: 20120521
  14. ASPIRIN [Concomitant]
     Route: 065
  15. NEXIUM [Concomitant]
     Route: 065
  16. AMLODIPINE BESYLATE [Concomitant]
     Route: 065
  17. PREDNISONE [Concomitant]
     Indication: POLYMYALGIA RHEUMATICA
     Route: 065
  18. ESCITALOPRAM [Concomitant]
     Route: 065
  19. ATORVASTATIN [Concomitant]
     Route: 065
  20. CALCIUM CARBONATE [Concomitant]
     Route: 065
  21. FLUTICASONE PROPIONATE/SALMETEROL [Concomitant]
     Route: 065

REACTIONS (1)
  - INTERSTITIAL LUNG DISEASE [None]
